FAERS Safety Report 9755950 (Version 1)
Quarter: 2013Q4

REPORT INFORMATION
  Report Type: Spontaneous
  Country: US (occurrence: US)
  Receive Date: 20131213
  Receipt Date: 20131213
  Transmission Date: 20140711
  Serious: No
  Sender: FDA-Public Use
  Company Number: US-GLAXOSMITHKLINE-A1027236A

PATIENT
  Age: 42 Year
  Sex: Female
  Weight: 106 kg

DRUGS (2)
  1. EQUATE NTS 21MG, CLEAR [Suspect]
     Indication: EX-TOBACCO USER
     Route: 062
     Dates: start: 20130610, end: 20130611
  2. INSULIN [Concomitant]

REACTIONS (1)
  - Drug ineffective [Unknown]
